FAERS Safety Report 20126696 (Version 1)
Quarter: 2021Q4

REPORT INFORMATION
  Report Type: Spontaneous
  Country: US (occurrence: None)
  Receive Date: 20211128
  Receipt Date: 20211128
  Transmission Date: 20220303
  Serious: Yes (Hospitalization, Disabling)
  Sender: FDA-Public Use
  Company Number: None

PATIENT

DRUGS (1)
  1. TECENTRIQ [Suspect]
     Active Substance: ATEZOLIZUMAB
     Indication: Hepatocellular carcinoma
     Dosage: OTHER ROUTE : PORT;?
     Route: 050
     Dates: start: 20211109, end: 20211110

REACTIONS (2)
  - Haemorrhagic stroke [None]
  - Hypertension [None]

NARRATIVE: CASE EVENT DATE: 20211110
